FAERS Safety Report 8494212-8 (Version None)
Quarter: 2012Q3

REPORT INFORMATION
  Report Type: 
  Country: None (occurrence: None)
  Receive Date: 20120709
  Receipt Date: 20120705
  Transmission Date: 20120928
  Serious: Yes (Death, Other)
  Sender: FDA-Public Use
  Company Number: PHHY2012CA044957

PATIENT
  Sex: Female

DRUGS (1)
  1. SANDOSTATIN LAR [Suspect]
     Indication: ILEOSTOMY
     Dosage: 20 MG, QMO
     Route: 030
     Dates: start: 20120304

REACTIONS (2)
  - DEATH [None]
  - TERMINAL STATE [None]
